FAERS Safety Report 12186379 (Version 5)
Quarter: 2018Q2

REPORT INFORMATION
  Report Type: Report from Study
  Country: US (occurrence: US)
  Receive Date: 20160317
  Receipt Date: 20180502
  Transmission Date: 20180711
  Serious: Yes (Other)
  Sender: FDA-Public Use
  Company Number: PHEH2016US006333

PATIENT
  Sex: Female

DRUGS (1)
  1. TOBI [Suspect]
     Active Substance: TOBRAMYCIN
     Indication: PRODUCT USED FOR UNKNOWN INDICATION
     Dosage: 5 ML, UNK
     Route: 065

REACTIONS (6)
  - Asthma [Unknown]
  - Lung disorder [Unknown]
  - Malaise [Unknown]
  - Cough [Unknown]
  - Tracheomalacia [Unknown]
  - Viral infection [Unknown]
